FAERS Safety Report 18726309 (Version 1)
Quarter: 2021Q1

REPORT INFORMATION
  Report Type: Spontaneous
  Country: CA (occurrence: CA)
  Receive Date: 20210111
  Receipt Date: 20210111
  Transmission Date: 20210419
  Serious: Yes (Hospitalization, Other)
  Sender: FDA-Public Use
  Company Number: CA-JNJFOC-20210109302

PATIENT
  Age: 63 Year
  Sex: Female

DRUGS (1)
  1. REMICADE [Suspect]
     Active Substance: INFLIXIMAB
     Indication: COLITIS ULCERATIVE
     Route: 042

REACTIONS (8)
  - Back pain [Unknown]
  - Pleural effusion [Unknown]
  - Insomnia [Unknown]
  - Pneumothorax [Unknown]
  - Dyspnoea [Unknown]
  - Pulmonary pain [Unknown]
  - Flank pain [Unknown]
  - Abdominal pain [Unknown]
